FAERS Safety Report 12943964 (Version 1)
Quarter: 2016Q4

REPORT INFORMATION
  Report Type: Spontaneous
  Country: US (occurrence: US)
  Receive Date: 20161115
  Receipt Date: 20161115
  Transmission Date: 20170207
  Serious: No
  Sender: FDA-Public Use
  Company Number: US-ROCHE-1737651

PATIENT
  Sex: Female

DRUGS (3)
  1. SYNTHROID [Concomitant]
     Active Substance: LEVOTHYROXINE SODIUM
  2. TAMIFLU [Suspect]
     Active Substance: OSELTAMIVIR PHOSPHATE
     Indication: ANTIVIRAL PROPHYLAXIS
     Route: 065
  3. BENZONATATE. [Concomitant]
     Active Substance: BENZONATATE
     Indication: COUGH

REACTIONS (1)
  - Influenza [Not Recovered/Not Resolved]
